FAERS Safety Report 17744961 (Version 1)
Quarter: 2020Q2

REPORT INFORMATION
  Report Type: Spontaneous
  Country: US (occurrence: US)
  Receive Date: 20200505
  Receipt Date: 20200505
  Transmission Date: 20200714
  Serious: No
  Sender: FDA-Public Use
  Company Number: US-PFIZER INC-2020179681

PATIENT
  Age: 79 Year
  Sex: Female

DRUGS (12)
  1. CALCIUM + VITAMIN D3 [Concomitant]
     Active Substance: CALCIUM\CHOLECALCIFEROL
     Dosage: UNK
  2. ATORVASTATIN [Concomitant]
     Active Substance: ATORVASTATIN
     Dosage: 20 MG
  3. OMEPRAZOLE. [Concomitant]
     Active Substance: OMEPRAZOLE
     Dosage: 20 MG
  4. VITAMIN D [COLECALCIFEROL] [Suspect]
     Active Substance: CHOLECALCIFEROL
     Dosage: 2000 IU
  5. LEVOTHYROXINE. [Concomitant]
     Active Substance: LEVOTHYROXINE
     Dosage: 20 UG
  6. LORATADINE. [Concomitant]
     Active Substance: LORATADINE
     Dosage: 10 MG
  7. DETROL LA [Concomitant]
     Active Substance: TOLTERODINE TARTRATE
     Dosage: 2 MG
  8. IBRANCE [Suspect]
     Active Substance: PALBOCICLIB
     Indication: BREAST CANCER FEMALE
     Dosage: 125 MG, CYCLIC (ONCE DAILY FOR 21 DAYS, 7 DAYS OFF)
     Route: 048
     Dates: start: 201912
  9. HYZAAR [Concomitant]
     Active Substance: HYDROCHLOROTHIAZIDE\LOSARTAN POTASSIUM
     Dosage: UNK
  10. OMEGA 3 [FISH OIL] [Concomitant]
     Active Substance: FISH OIL
     Dosage: 1000 MG
  11. ASPIRIN [ACETYLSALICYLIC ACID] [Concomitant]
     Active Substance: ASPIRIN
     Dosage: 81 MG
  12. ACETAMINOPHEN. [Concomitant]
     Active Substance: ACETAMINOPHEN
     Dosage: 325 MG

REACTIONS (1)
  - Dry eye [Not Recovered/Not Resolved]
